FAERS Safety Report 17299620 (Version 1)
Quarter: 2020Q1

REPORT INFORMATION
  Report Type: Spontaneous
  Country: US (occurrence: US)
  Receive Date: 20200121
  Receipt Date: 20200121
  Transmission Date: 20200409
  Serious: No
  Sender: FDA-Public Use
  Company Number: US-GALDERMA-US19069736

PATIENT
  Sex: Male

DRUGS (1)
  1. EPIDUO [Suspect]
     Active Substance: ADAPALENE\BENZOYL PEROXIDE
     Indication: PRODUCT USED FOR UNKNOWN INDICATION
     Dosage: 0.1/2.5%
     Route: 061
     Dates: start: 2019

REACTIONS (1)
  - Skin burning sensation [Unknown]

NARRATIVE: CASE EVENT DATE: 2019
